FAERS Safety Report 5482576-9 (Version None)
Quarter: 2007Q4

REPORT INFORMATION
  Report Type: 
  Country: None (occurrence: None)
  Receive Date: 20071011
  Receipt Date: 20070717
  Transmission Date: 20080405
  Serious: Yes (Hospitalization)
  Sender: FDA-Public Use
  Company Number: A0664572A

PATIENT
  Age: 62 Year
  Sex: Female

DRUGS (6)
  1. TYKERB [Suspect]
     Indication: BREAST CANCER
     Route: 048
     Dates: start: 20070508
  2. XELODA [Suspect]
     Indication: BREAST CANCER
     Dosage: 3TAB TWICE PER DAY
     Route: 048
     Dates: start: 20070508
  3. ACIPHEX [Concomitant]
  4. PAROXETINE [Concomitant]
  5. IMODIUM [Concomitant]
  6. IV FLUIDS [Concomitant]

REACTIONS (1)
  - DIARRHOEA [None]
